FAERS Safety Report 7881212-1 (Version None)
Quarter: 2011Q4

REPORT INFORMATION
  Report Type: 
  Country: None (occurrence: None)
  Receive Date: 20111101
  Receipt Date: 20111025
  Transmission Date: 20120403
  Serious: Yes (Hospitalization, Other)
  Sender: FDA-Public Use
  Company Number: BR-ABBOTT-11P-020-0868319-00

PATIENT
  Sex: Female
  Weight: 80 kg

DRUGS (4)
  1. SULFASALAZINE [Concomitant]
     Indication: ANTIBIOTIC PROPHYLAXIS
     Route: 048
  2. HUMIRA [Suspect]
     Indication: ANKYLOSING SPONDYLITIS
     Route: 058
     Dates: start: 20110512
  3. SERUM [Concomitant]
     Indication: PRODUCT USED FOR UNKNOWN INDICATION
     Route: 042
  4. UNKNOWN MEDICATION [Concomitant]
     Indication: PRODUCT USED FOR UNKNOWN INDICATION
     Route: 042

REACTIONS (5)
  - GROIN PAIN [None]
  - DYSURIA [None]
  - BLADDER PAIN [None]
  - UMBILICAL HERNIA [None]
  - APPENDICITIS [None]
